FAERS Safety Report 15042958 (Version 3)
Quarter: 2025Q4

REPORT INFORMATION
  Report Type: Spontaneous
  Country: EU (occurrence: EU)
  Receive Date: 20180621
  Receipt Date: 20251027
  Transmission Date: 20260118
  Serious: Yes (Death, Hospitalization, Other)
  Sender: BAYER HEALTHCARE PHARMACEUTICALS INC.
  Company Number: EU-BAYER-2018-112153

PATIENT
  Age: 70 Year
  Sex: Male

DRUGS (20)
  1. CIPROFLOXACIN [Suspect]
     Active Substance: CIPROFLOXACIN
     Indication: Pneumonia
     Dosage: UNK
  2. CIPROFLOXACIN [Suspect]
     Active Substance: CIPROFLOXACIN
     Indication: Pneumonia
     Dosage: UNK
  3. ASPIRIN [Suspect]
     Active Substance: ASPIRIN
     Indication: Thrombosis prophylaxis
     Dosage: 75 MG, QD
  4. ASPIRIN [Suspect]
     Active Substance: ASPIRIN
     Indication: Antiplatelet therapy
  5. TICAGRELOR [Suspect]
     Active Substance: TICAGRELOR
     Indication: Thrombosis prophylaxis
     Dosage: 90 MG, 2X PER DAY
  6. TICAGRELOR [Suspect]
     Active Substance: TICAGRELOR
     Indication: Antiplatelet therapy
     Dosage: 180 UNK
  7. ENOXAPARIN SODIUM [Suspect]
     Active Substance: ENOXAPARIN SODIUM
     Indication: Thrombosis
     Dosage: 40 MG
     Route: 058
  8. EVEROLIMUS [Suspect]
     Active Substance: EVEROLIMUS
     Dosage: DRUG-ELUTING STENT
  9. EVEROLIMUS [Suspect]
     Active Substance: EVEROLIMUS
     Dosage: INFUSION
  10. LEVOFLOXACIN [Suspect]
     Active Substance: LEVOFLOXACIN
     Indication: Sputum culture
     Dosage: UNK
     Route: 065
  11. LEVOFLOXACIN [Suspect]
     Active Substance: LEVOFLOXACIN
     Indication: Antibiotic therapy
  12. CEFTRIAXONE [Suspect]
     Active Substance: CEFTRIAXONE
     Indication: Pneumonia
     Dosage: UNK
  13. MEROPENEM [Suspect]
     Active Substance: MEROPENEM
     Indication: Sputum culture
     Dosage: UNK
     Route: 065
  14. MEROPENEM [Suspect]
     Active Substance: MEROPENEM
     Indication: Antibiotic therapy
  15. GENTAMICIN [Suspect]
     Active Substance: GENTAMICIN
     Dosage: UNK
  16. EPTIFIBATIDE [Suspect]
     Active Substance: EPTIFIBATIDE
     Dosage: INFUSION
  17. EPTIFIBATIDE [Concomitant]
     Active Substance: EPTIFIBATIDE
     Dosage: UNK
     Route: 041
  18. EPTIFIBATIDE [Concomitant]
     Active Substance: EPTIFIBATIDE
     Dosage: UNK
  19. UNSPECIFIED INGREDIENT [Suspect]
     Active Substance: UNSPECIFIED INGREDIENT
     Dosage: 40 MG
     Route: 058
  20. TICAGRELOR [Concomitant]
     Active Substance: TICAGRELOR

REACTIONS (12)
  - Cardiac arrest [Fatal]
  - Respiratory failure [Fatal]
  - Cardiac ventricular thrombosis [Fatal]
  - Condition aggravated [None]
  - C-reactive protein increased [None]
  - White blood cell count increased [None]
  - Procalcitonin increased [None]
  - Drug ineffective [Fatal]
  - Pneumonia [Fatal]
  - Haematoma [Fatal]
  - Ventricular hypokinesia [Unknown]
  - Skin necrosis [Unknown]
